FAERS Safety Report 4748161-9 (Version None)
Quarter: 2005Q3

REPORT INFORMATION
  Report Type: 
  Country: None (occurrence: None)
  Receive Date: 20050818
  Receipt Date: 20050808
  Transmission Date: 20060218
  Serious: Yes (Other)
  Sender: FDA-Public Use
  Company Number: US-ROCHE-413698

PATIENT
  Sex: Male

DRUGS (1)
  1. ACCUTANE [Suspect]
     Indication: ACNE
     Dates: start: 19930129, end: 19930615

REACTIONS (6)
  - APGAR SCORE LOW [None]
  - CAESAREAN SECTION [None]
  - FOETAL HEART RATE DECELERATION [None]
  - TRANSVERSE PRESENTATION [None]
  - TRISOMY 21 [None]
  - UMBILICAL CORD ABNORMALITY [None]
